FAERS Safety Report 8326532-1 (Version None)
Quarter: 2012Q2

REPORT INFORMATION
  Report Type: 
  Country: None (occurrence: None)
  Receive Date: 20120501
  Receipt Date: 20120424
  Transmission Date: 20120825
  Serious: Yes (Other)
  Sender: FDA-Public Use
  Company Number: CA-PFIZER INC-2012068726

PATIENT
  Age: 39 Year
  Sex: Female

DRUGS (3)
  1. LYRICA [Suspect]
     Indication: PAIN
     Dosage: 50 MG, 2X/DAY
     Route: 048
     Dates: start: 20120308
  2. NAPROXEN [Concomitant]
     Indication: ANALGESIC INTERVENTION SUPPORTIVE THERAPY
     Dosage: 500 MG, 2X/DAY
     Dates: start: 20120203
  3. TRIQUILAR [Concomitant]
     Indication: ORAL CONTRACEPTION
     Dosage: 1 TAB TWICE DAILY
     Dates: start: 20090130

REACTIONS (3)
  - FATIGUE [None]
  - URINARY TRACT INFECTION [None]
  - DRUG DISPENSING ERROR [None]
